FAERS Safety Report 8264784-7 (Version None)
Quarter: 2012Q2

REPORT INFORMATION
  Report Type: 
  Country: None (occurrence: None)
  Receive Date: 20120406
  Receipt Date: 20120330
  Transmission Date: 20120825
  Serious: Yes (Other)
  Sender: FDA-Public Use
  Company Number: JP-JNJFOC-20120311371

PATIENT
  Age: 46 Year
  Sex: Male

DRUGS (1)
  1. NICORETTE FRUITYMINT [Suspect]
     Indication: SMOKING CESSATION THERAPY
     Dosage: INITIALLY 5-6 PIECES A DAY THEN ABOUT 25-30 PIECES A DAY
     Route: 048
     Dates: start: 20100101

REACTIONS (3)
  - OVERDOSE [None]
  - INTENTIONAL DRUG MISUSE [None]
  - DEPENDENCE [None]
